FAERS Safety Report 9668242 (Version 2)
Quarter: 2013Q4

REPORT INFORMATION
  Report Type: Report from Study
  Country: US (occurrence: US)
  Receive Date: 20131104
  Receipt Date: 20131104
  Transmission Date: 20140711
  Serious: Yes (Death)
  Sender: FDA-Public Use
  Company Number: US-ABBVIE-12P-163-0935760-00

PATIENT
  Age: 65 Year
  Sex: Female
  Weight: 81.72 kg

DRUGS (36)
  1. HUMIRA 40 MG/ 0.8 ML PRE-FILLED SYRINGE [Suspect]
     Indication: RHEUMATOID ARTHRITIS
     Route: 058
     Dates: start: 20110311, end: 201205
  2. HUMIRA 40 MG/ 0.8 ML PRE-FILLED SYRINGE [Suspect]
     Indication: OSTEOARTHRITIS
     Dates: start: 20090728, end: 20110311
  3. AVAPRO [Concomitant]
     Indication: PRODUCT USED FOR UNKNOWN INDICATION
     Dates: start: 20050912
  4. HYDROCHLOROTHIAZIDE [Concomitant]
     Indication: PRODUCT USED FOR UNKNOWN INDICATION
     Dates: start: 20050912
  5. HYDROCHLOROTHIAZIDE [Concomitant]
     Dates: start: 20060925
  6. ACIPHEX [Concomitant]
     Indication: PRODUCT USED FOR UNKNOWN INDICATION
     Dates: start: 20050912
  7. ACIPHEX [Concomitant]
     Dates: start: 20090728
  8. ACIPHEX [Concomitant]
     Dates: start: 20110311
  9. BELLAMINE S [Concomitant]
     Indication: PRODUCT USED FOR UNKNOWN INDICATION
     Dosage: 2 TABS PER DAY
     Dates: start: 20050912
  10. CENESTIN [Concomitant]
     Indication: PRODUCT USED FOR UNKNOWN INDICATION
     Dates: start: 20050912
  11. CENESTIN [Concomitant]
     Dates: start: 20090728, end: 20101217
  12. CENESTIN [Concomitant]
     Dates: start: 20110311
  13. FOLIC ACID [Concomitant]
     Indication: PRODUCT USED FOR UNKNOWN INDICATION
     Dates: start: 20050912
  14. FOLIC ACID [Concomitant]
     Dates: start: 20090728
  15. FOLIC ACID [Concomitant]
     Dates: start: 20101217
  16. CELEBREX [Concomitant]
     Indication: PRODUCT USED FOR UNKNOWN INDICATION
     Dates: start: 20050925
  17. ENTERIC ASPIRIN [Concomitant]
     Indication: PRODUCT USED FOR UNKNOWN INDICATION
     Dates: start: 20050912
  18. ENTERIC ASPIRIN [Concomitant]
     Dates: start: 20090728
  19. ENTERIC ASPIRIN [Concomitant]
     Dates: start: 20110311
  20. GLUCOSAMINE + CHONDROITIN [Concomitant]
     Indication: PRODUCT USED FOR UNKNOWN INDICATION
     Dosage: DAILY, 500/400
     Dates: start: 20050912
  21. VITAMIN C [Concomitant]
     Indication: PRODUCT USED FOR UNKNOWN INDICATION
     Dates: start: 20050912
  22. VITAMIN C [Concomitant]
     Dates: start: 20100127
  23. FISH OIL [Concomitant]
     Indication: PRODUCT USED FOR UNKNOWN INDICATION
     Dates: start: 20050912
  24. CA, VIT  D, NG, ZN [Concomitant]
     Indication: PRODUCT USED FOR UNKNOWN INDICATION
     Dates: start: 20050912
  25. MULTIVITAMIN [Concomitant]
     Indication: PRODUCT USED FOR UNKNOWN INDICATION
     Dates: start: 20050912
  26. METHOTREXATE [Concomitant]
     Indication: RHEUMATOID ARTHRITIS
     Dates: start: 20060531
  27. METHOTREXATE [Concomitant]
     Dates: start: 20060925
  28. METHOTREXATE [Concomitant]
     Dates: start: 20090728
  29. METHOTREXATE [Concomitant]
     Dosage: 3 TABS PER WEEK
  30. NITROFUCAN MCG [Concomitant]
     Indication: PRODUCT USED FOR UNKNOWN INDICATION
     Dates: start: 20060925
  31. AVALIDE [Concomitant]
     Indication: PRODUCT USED FOR UNKNOWN INDICATION
     Dosage: 150/12.5
     Dates: start: 20090728
  32. MOBIC [Concomitant]
     Indication: PRODUCT USED FOR UNKNOWN INDICATION
     Dates: start: 20090728
  33. METROPOLOL [Concomitant]
     Indication: PRODUCT USED FOR UNKNOWN INDICATION
     Dosage: 25 MG AM, 20 MG PM
     Dates: start: 20091027
  34. METROPOLOL [Concomitant]
     Dates: start: 20100127
  35. NITROSTAT [Concomitant]
     Indication: PRODUCT USED FOR UNKNOWN INDICATION
     Dates: start: 20100127
  36. LEVOTHYROXINE [Concomitant]
     Indication: PRODUCT USED FOR UNKNOWN INDICATION
     Dates: start: 20101217

REACTIONS (2)
  - Cardiac failure [Fatal]
  - Myocardial infarction [Fatal]
